FAERS Safety Report 4841156-6 (Version None)
Quarter: 2005Q4

REPORT INFORMATION
  Report Type: 
  Country: None (occurrence: None)
  Receive Date: 20051130
  Receipt Date: 20051014
  Transmission Date: 20060501
  Serious: Yes (Death)
  Sender: FDA-Public Use
  Company Number: US-BRISTOL-MYERS SQUIBB COMPANY-13146394

PATIENT
  Sex: Male

DRUGS (3)
  1. ABILIFY [Suspect]
  2. RISPERIDONE [Suspect]
  3. SEROQUEL [Suspect]

REACTIONS (1)
  - DEATH [None]
